FAERS Safety Report 25476996 (Version 1)
Quarter: 2025Q2

REPORT INFORMATION
  Report Type: Spontaneous
  Country: IN (occurrence: IN)
  Receive Date: 20250625
  Receipt Date: 20250625
  Transmission Date: 20250716
  Serious: Yes (Death)
  Sender: GE HEALTHCARE
  Company Number: IN-GE HEALTHCARE-2025CSU008133

PATIENT

DRUGS (1)
  1. OMNISCAN [Suspect]
     Active Substance: GADODIAMIDE
     Indication: Scan with contrast
     Route: 065
     Dates: start: 20250606

REACTIONS (1)
  - Death [Fatal]
